FAERS Safety Report 8584584-8 (Version None)
Quarter: 2012Q3

REPORT INFORMATION
  Report Type: 
  Country: None (occurrence: None)
  Receive Date: 20120730
  Receipt Date: 20120718
  Transmission Date: 20120928
  Serious: Yes (Other)
  Sender: FDA-Public Use
  Company Number: CPI 3635

PATIENT
  Age: 33 Year
  Sex: Female

DRUGS (8)
  1. ZOFRAN [Concomitant]
  2. CALDOLOR [Suspect]
     Indication: PROCEDURAL PAIN
     Dosage: 800MG 1-TIME IV
     Route: 042
     Dates: start: 20120716
  3. ROCURONIUM BROMIDE [Concomitant]
  4. DECADRON PHOSPHATE [Concomitant]
  5. FENTANYL [Concomitant]
  6. DILAUDID [Concomitant]
  7. PROPOFOL [Concomitant]
  8. SUCCINYLCHOLINE CHLORIDE [Concomitant]

REACTIONS (5)
  - WRONG TECHNIQUE IN DRUG USAGE PROCESS [None]
  - SKIN IRRITATION [None]
  - DRUG ADMINISTRATION ERROR [None]
  - ADMINISTRATION SITE REACTION [None]
  - THROMBOSIS [None]
